FAERS Safety Report 22022729 (Version 1)
Quarter: 2023Q1

REPORT INFORMATION
  Report Type: Spontaneous
  Country: FR (occurrence: FR)
  Receive Date: 20230222
  Receipt Date: 20230222
  Transmission Date: 20230418
  Serious: Yes (Other)
  Sender: FDA-Public Use
  Company Number: None

PATIENT
  Age: 48 Year
  Sex: Female

DRUGS (6)
  1. AZITHROMYCIN [Suspect]
     Active Substance: AZITHROMYCIN
     Indication: Mycobacterial infection
     Dosage: 250 MG, 1X/DAY
     Route: 048
     Dates: start: 20230119, end: 20230203
  2. AMOXICILLIN [Suspect]
     Active Substance: AMOXICILLIN
     Indication: Bacterial infection
     Dosage: UNK
     Route: 048
     Dates: start: 202301
  3. ETHAMBUTOL HYDROCHLORIDE [Suspect]
     Active Substance: ETHAMBUTOL HYDROCHLORIDE
     Indication: Mycobacterial infection
     Dosage: 1250 MG PAR JOUR
     Route: 048
     Dates: start: 20230119, end: 20230203
  4. LAMPRENE [Suspect]
     Active Substance: CLOFAZIMINE
     Indication: Mycobacterial infection
     Dosage: 100 MG, 1X/DAY
     Route: 048
     Dates: start: 20230126, end: 20230203
  5. CLAVULANIC ACID [Suspect]
     Active Substance: CLAVULANIC ACID
     Indication: Bacterial infection
     Route: 048
     Dates: start: 202301
  6. NOXAFIL [Concomitant]
     Active Substance: POSACONAZOLE
     Indication: Aspergillus infection
     Dosage: UNK
     Route: 048

REACTIONS (3)
  - Hepatic cytolysis [Not Recovered/Not Resolved]
  - Eosinophilia [Not Recovered/Not Resolved]
  - Off label use [Unknown]

NARRATIVE: CASE EVENT DATE: 20230101
